FAERS Safety Report 4836412-1 (Version None)
Quarter: 2005Q4

REPORT INFORMATION
  Report Type: 
  Country: None (occurrence: None)
  Receive Date: 20051123
  Receipt Date: 20051108
  Transmission Date: 20060501
  Serious: Yes (Other)
  Sender: FDA-Public Use
  Company Number: PHBS2005GR16538

PATIENT
  Age: 58 Year
  Sex: Male

DRUGS (3)
  1. SANDIMMUNE [Suspect]
     Indication: LIVER TRANSPLANT
     Dosage: 150 MG/DAY
     Route: 048
  2. CORTISONE ACETATE TAB [Concomitant]
     Dosage: 8 MG/DAY
  3. CELLCEPT [Concomitant]
     Dosage: 1.5 G/D

REACTIONS (1)
  - OTOTOXICITY [None]
